FAERS Safety Report 4607109-8 (Version None)
Quarter: 2005Q1

REPORT INFORMATION
  Report Type: 
  Country: None (occurrence: None)
  Receive Date: 20050310
  Receipt Date: 20050225
  Transmission Date: 20050727
  Serious: Yes (Hospitalization)
  Sender: FDA-Public Use
  Company Number: HQWYE017402FEB05

PATIENT
  Age: 58 Year
  Sex: Female
  Weight: 54.4 kg

DRUGS (4)
  1. TACROLIMUS, CONTROL FOR SIROLIMUS (TACROLIMUS, CONTROL FOR SIROLIMUS, [Suspect]
     Indication: PROPHYLAXIS AGAINST TRANSPLANT REJECTION
     Dosage: DOSE/FREQUENCY, ORAL
     Route: 048
  2. CELLCEPT [Suspect]
     Indication: PROPHYLAXIS AGAINST TRANSPLANT REJECTION
     Dosage: DOSE/FREQUENCY, ORAL
     Route: 048
  3. CORTICOSTEROIDS (CORTICOSTEROIDS, ) [Suspect]
     Indication: PROPHYLAXIS AGAINST TRANSPLANT REJECTION
     Dosage: DOSE/FREQUENCY, ORAL
     Route: 048
  4. LIPITOR [Concomitant]

REACTIONS (5)
  - ABDOMINAL PAIN [None]
  - BLOODY DISCHARGE [None]
  - EROSIVE OESOPHAGITIS [None]
  - ULTRASOUND KIDNEY ABNORMAL [None]
  - WOUND DRAINAGE [None]
